FAERS Safety Report 13961569 (Version 1)
Quarter: 2017Q3

REPORT INFORMATION
  Report Type: Spontaneous
  Country: GB (occurrence: GB)
  Receive Date: 20170912
  Receipt Date: 20170912
  Transmission Date: 20171128
  Serious: Yes (Other)
  Sender: FDA-Public Use
  Company Number: GB-FERRINGPH-2017FE03573

PATIENT
  Sex: Male

DRUGS (2)
  1. DESMOSPRAY [Suspect]
     Active Substance: DESMOPRESSIN
     Indication: ENURESIS
     Route: 065
  2. DESMOTABS [Suspect]
     Active Substance: DESMOPRESSIN
     Indication: ENURESIS
     Dosage: UNK
     Route: 065
     Dates: start: 2007, end: 2015

REACTIONS (6)
  - Off label use [Unknown]
  - Contraindicated product administered [Unknown]
  - Hypertension [Unknown]
  - Left ventricular hypertrophy [Unknown]
  - Product use in unapproved indication [Unknown]
  - Contraindicated product administered [Recovered/Resolved]

NARRATIVE: CASE EVENT DATE: 2007
